FAERS Safety Report 20596307 (Version 2)
Quarter: 2022Q1

REPORT INFORMATION
  Report Type: Report from Study
  Country: US (occurrence: US)
  Receive Date: 20220315
  Receipt Date: 20220317
  Transmission Date: 20220423
  Serious: Yes (Other)
  Sender: FDA-Public Use
  Company Number: US-ViiV Healthcare Limited-US2022GSK043886

PATIENT
  Age: 26 Year
  Sex: Female

DRUGS (1)
  1. DOLUTEGRAVIR [Suspect]
     Active Substance: DOLUTEGRAVIR
     Indication: HIV infection

REACTIONS (2)
  - Stillbirth [Unknown]
  - Endometritis [Recovered/Resolved]

NARRATIVE: CASE EVENT DATE: 20190529
